FAERS Safety Report 14174415 (Version 1)
Quarter: 2017Q4

REPORT INFORMATION
  Report Type: Spontaneous
  Country: US (occurrence: US)
  Receive Date: 20171109
  Receipt Date: 20171109
  Transmission Date: 20180321
  Serious: No
  Sender: FDA-Public Use
  Company Number: US-PERRIGO-17US003217

PATIENT
  Age: 66 Year
  Sex: Female
  Weight: 68.93 kg

DRUGS (4)
  1. PREMARIN [Concomitant]
     Active Substance: ESTROGENS, CONJUGATED
     Indication: MENOPAUSE
     Dosage: UNKNOWN, UNKNOWN
     Route: 048
     Dates: start: 2016
  2. FAMOTIDINE. [Suspect]
     Active Substance: FAMOTIDINE
     Dosage: 20 MG, QD
     Route: 048
     Dates: start: 201703, end: 20170326
  3. FAMOTIDINE. [Suspect]
     Active Substance: FAMOTIDINE
     Dosage: 1/2 TABLET, QD
     Route: 048
     Dates: start: 20170327, end: 20170410
  4. FAMOTIDINE. [Suspect]
     Active Substance: FAMOTIDINE
     Indication: DYSPEPSIA
     Dosage: 20 MG, QD
     Route: 048
     Dates: start: 2007, end: 201703

REACTIONS (4)
  - Incorrect drug administration duration [Recovered/Resolved]
  - Incorrect dose administered [Recovered/Resolved]
  - Fatigue [Recovered/Resolved]
  - Wrong technique in product usage process [Recovered/Resolved]

NARRATIVE: CASE EVENT DATE: 2007
